FAERS Safety Report 8170570-9 (Version None)
Quarter: 2012Q1

REPORT INFORMATION
  Report Type: 
  Country: None (occurrence: None)
  Receive Date: 20120228
  Receipt Date: 20120222
  Transmission Date: 20120608
  Serious: Yes (Other)
  Sender: FDA-Public Use
  Company Number: FR-ROCHE-1042546

PATIENT
  Age: 40 Year
  Sex: Female

DRUGS (2)
  1. ESCITALOPRAM OXALATE [Concomitant]
     Dates: start: 20080822, end: 20080929
  2. HERCEPTIN [Suspect]
     Indication: BREAST CANCER
     Route: 042
     Dates: start: 20080227

REACTIONS (1)
  - DERMATOMYOSITIS [None]
